FAERS Safety Report 9920666 (Version 1)
Quarter: 2014Q1

REPORT INFORMATION
  Report Type: Report from Study
  Country: US (occurrence: US)
  Receive Date: 20140224
  Receipt Date: 20140224
  Transmission Date: 20141002
  Serious: Yes (Hospitalization)
  Sender: FDA-Public Use
  Company Number: US-ABBVIE-14P-163-1204383-00

PATIENT
  Age: 46 Year
  Sex: Male

DRUGS (10)
  1. HUMIRA [Suspect]
     Indication: CROHN^S DISEASE
     Dates: start: 20130802, end: 20130918
  2. LOMOTIL [Concomitant]
     Indication: DIARRHOEA
     Dosage: 5 TIMES PER DAY
  3. OMEPRAZOLE [Concomitant]
     Indication: GASTRIC DISORDER
     Dosage: TWICE A DAY
  4. CLONAZEPAM [Concomitant]
     Indication: ANXIETY
  5. CLONAZEPAM [Concomitant]
     Indication: CONVULSION
  6. SEROQUEL [Concomitant]
     Indication: POST-TRAUMATIC STRESS DISORDER
  7. NORTRIPTYLINE [Concomitant]
     Indication: DEPRESSION
     Dosage: AT BEDTIME
  8. DILANTIN [Concomitant]
     Indication: CONVULSION
  9. METOPROLOL [Concomitant]
     Indication: BLOOD PRESSURE
  10. CHOLESTYRAMINE [Concomitant]
     Indication: CROHN^S DISEASE
     Dosage: POWDER

REACTIONS (12)
  - Gastrointestinal disorder [Recovered/Resolved]
  - Asthenia [Unknown]
  - Hyperhidrosis [Recovered/Resolved]
  - Fall [Unknown]
  - Vomiting [Recovered/Resolved]
  - Abdominal pain [Recovered/Resolved]
  - Abdominal pain upper [Unknown]
  - Pneumonia [Unknown]
  - Oropharyngeal pain [Unknown]
  - Upper respiratory tract infection [Unknown]
  - Bronchitis [Unknown]
  - Drug ineffective [Not Recovered/Not Resolved]
